FAERS Safety Report 12749598 (Version 1)
Quarter: 2016Q3

REPORT INFORMATION
  Report Type: Spontaneous
  Country: US (occurrence: US)
  Receive Date: 20160916
  Receipt Date: 20160916
  Transmission Date: 20161109
  Serious: Yes (Other)
  Sender: FDA-Public Use
  Company Number: PHHY2016US126970

PATIENT
  Age: 54 Year
  Sex: Female

DRUGS (2)
  1. DABRAFENIB [Suspect]
     Active Substance: DABRAFENIB
     Indication: LUNG ADENOCARCINOMA STAGE IV
     Dosage: 100 MG, BID
     Route: 065
  2. ETANERCEPT [Concomitant]
     Active Substance: ETANERCEPT
     Indication: PSORIASIS
     Dosage: 25 MG, BIW
     Route: 065

REACTIONS (4)
  - Subcutaneous abscess [Recovering/Resolving]
  - Pustular psoriasis [Recovering/Resolving]
  - Acanthosis [Recovering/Resolving]
  - Product use issue [Unknown]
